FAERS Safety Report 11865590 (Version 1)
Quarter: 2015Q4

REPORT INFORMATION
  Report Type: Spontaneous
  Country: NL (occurrence: NL)
  Receive Date: 20151223
  Receipt Date: 20151223
  Transmission Date: 20160305
  Serious: Yes (Other)
  Sender: FDA-Public Use
  Company Number: NL-PFIZER INC-2015461616

PATIENT
  Age: 29 Year
  Sex: Female
  Weight: 87 kg

DRUGS (2)
  1. VENLAFAXINE HCL [Suspect]
     Active Substance: VENLAFAXINE HYDROCHLORIDE
     Indication: MENTAL DISORDER
     Dosage: 150 MG, 1X/DAY
     Route: 048
     Dates: start: 2013
  2. EMESAFENE [Concomitant]
     Active Substance: MECLIZINE\PYRIDOXINE
     Dosage: UNK
     Dates: start: 2015, end: 2015

REACTIONS (1)
  - Foetal death [Unknown]

NARRATIVE: CASE EVENT DATE: 20151211
